FAERS Safety Report 7020546-X (Version None)
Quarter: 2010Q3

REPORT INFORMATION
  Report Type: 
  Country: None (occurrence: None)
  Receive Date: 20100929
  Receipt Date: 20100920
  Transmission Date: 20110219
  Serious: Yes (Other)
  Sender: FDA-Public Use
  Company Number: US-KINGPHARMUSA00001-K201001172

PATIENT
  Age: 55 Year
  Sex: Female

DRUGS (13)
  1. ALTACE [Suspect]
     Dosage: UNK
     Route: 048
     Dates: start: 20080101
  2. ALTACE [Suspect]
     Dosage: UNK
     Dates: start: 20090701, end: 20090901
  3. TAMIFLU [Suspect]
     Indication: PROPHYLAXIS
     Dosage: 75 MG, BID
     Dates: start: 20080101
  4. TAMIFLU [Suspect]
     Dosage: UNK
     Dates: start: 20090501, end: 20090101
  5. TAMIFLU [Suspect]
     Dosage: UNK
     Dates: start: 20090701
  6. PREDNISONE [Suspect]
     Indication: ANGIOEDEMA
     Dosage: 7.5 MG, UNK
     Dates: start: 20090501
  7. LANTUS [Concomitant]
  8. XYZAL [Concomitant]
  9. ASPIRIN [Concomitant]
  10. HYDROCHLOROTHIAZIDE [Concomitant]
  11. COLCHICINE [Concomitant]
  12. METFORMIN [Concomitant]
  13. ZOCOR [Concomitant]

REACTIONS (4)
  - ADRENAL INSUFFICIENCY [None]
  - ANGIOEDEMA [None]
  - ERYTHEMA NODOSUM [None]
  - RASH MACULO-PAPULAR [None]
